FAERS Safety Report 7035259-8 (Version None)
Quarter: 2010Q4

REPORT INFORMATION
  Report Type: 
  Country: None (occurrence: None)
  Receive Date: 20101008
  Receipt Date: 20101001
  Transmission Date: 20110411
  Serious: Yes (Other)
  Sender: FDA-Public Use
  Company Number: A0878131A

PATIENT
  Age: 79 Year
  Sex: Male

DRUGS (7)
  1. ADVAIR DISKUS 100/50 [Suspect]
     Indication: ASTHMA
     Dosage: 1PUFF TWICE PER DAY
     Route: 055
     Dates: start: 20000101
  2. SINGULAIR [Concomitant]
  3. SYNTHROID [Concomitant]
  4. ASPIRIN [Concomitant]
  5. ALBUTEROL [Concomitant]
  6. XANAX [Concomitant]
  7. PLAVIX [Concomitant]

REACTIONS (7)
  - BLINDNESS [None]
  - CATARACT OPERATION [None]
  - CHEST PAIN [None]
  - DYSPNOEA [None]
  - IMPAIRED DRIVING ABILITY [None]
  - PHOTOPHOBIA [None]
  - VISUAL ACUITY REDUCED [None]
